FAERS Safety Report 5688147-3 (Version None)
Quarter: 2008Q1

REPORT INFORMATION
  Report Type: 
  Country: None (occurrence: None)
  Receive Date: 20080327
  Receipt Date: 20080311
  Transmission Date: 20080703
  Serious: Yes (Other)
  Sender: FDA-Public Use
  Company Number: 2008EU000548

PATIENT
  Age: 27 Year
  Sex: Female

DRUGS (3)
  1. TACROLIMUS [Suspect]
     Indication: INTESTINAL TRANSPLANT
     Dosage: D
  2. AMINOGLYCOSIDE ANTIBACTERIALS [Suspect]
     Indication: INTESTINAL TRANSPLANT
     Dosage: D, IV NOS
     Route: 042
  3. CORTICOSTEROIDS [Suspect]
     Indication: INTESTINAL TRANSPLANT
     Dosage: D, IV NOS
     Route: 042

REACTIONS (4)
  - ASTHENIA [None]
  - DETOXIFICATION [None]
  - DRUG INTERACTION [None]
  - POLYNEUROPATHY [None]
